FAERS Safety Report 9506328 (Version 1)
Quarter: 2013Q1

REPORT INFORMATION
  Report Type: Spontaneous
  Country: US (occurrence: None)
  Receive Date: 20130305
  Receipt Date: 20130305
  Transmission Date: 20140127
  Serious: Yes (Hospitalization, Other)
  Sender: FDA-Public Use
  Company Number: 163-21880-12050500

PATIENT
  Age: 76 Year
  Sex: Female
  Weight: 101.61 kg

DRUGS (22)
  1. REVLIMID (LENALIDOMIDE) (15 MILLIGRAM, CAPSULES) [Suspect]
     Indication: PLASMA CELL MYELOMA
     Dosage: 15 MG, 21 IN 28 D, PO
     Route: 048
     Dates: start: 20120415
  2. DEXAMETHASONE (DEXAMETHASONE) [Suspect]
     Indication: PRODUCT USED FOR UNKNOWN INDICATION
     Dosage: WEEKLY, UNK
  3. ALOPURINOL (ALLOPURINOL) (TABLETS) [Concomitant]
  4. AMLODIPINE / BENAZEPRIL (AMLODIPINE BESYLATE W/ BENAZEPRIL) [Concomitant]
  5. ASPIRIN (ACETYLSALICYLIC ACID) [Concomitant]
  6. EZETIMIBE/ SIMVASTATIN (INEGY) [Concomitant]
  7. FUROSEMIDE (FUROSEMIDE) [Concomitant]
  8. INSULIN ASPART (INSULIN ASPART) [Concomitant]
  9. INSULIN GLARGINE (INSULIN GLARGINE) [Concomitant]
  10. LANSOPRAZOLE (LANSOPRAZOLE) [Concomitant]
  11. LUBIPROSTONE (LUBIPROSTONE) [Concomitant]
  12. METOCLOPRAMIDE (METOCLOPRAMIDE) [Concomitant]
  13. INDOCIN (INDOMETACIN) [Concomitant]
  14. CRESTOR (ROSUVASTATIN) (TABLETS) [Concomitant]
  15. VYTORIN (INEGY) [Concomitant]
  16. DIOVAN (VALSARTAN) (TABLETS) [Concomitant]
  17. EXFORGE (AMLODIPINE W/ VALSARTAN) (TABLETS) [Concomitant]
  18. PREDNISONE (PREDNISONE) (10 MILLIGRAM, TABLETS) [Concomitant]
  19. POTASSIUM (PREDNISONE) (10 MILLIGRAM, TABLETS) [Concomitant]
  20. LOTREL (LOTREL) [Concomitant]
  21. NEXIUM [Concomitant]
  22. TYLENOL #3 (SOLPADEINE) [Concomitant]

REACTIONS (6)
  - Blood creatinine increased [None]
  - Blood urea increased [None]
  - Haemoglobin decreased [None]
  - Neutrophil count decreased [None]
  - Blood potassium decreased [None]
  - Dizziness [None]
